FAERS Safety Report 19511392 (Version 1)
Quarter: 2021Q3

REPORT INFORMATION
  Report Type: Spontaneous
  Country: US (occurrence: US)
  Receive Date: 20210708
  Receipt Date: 20210708
  Transmission Date: 20211014
  Serious: Yes (Hospitalization)
  Sender: FDA-Public Use
  Company Number: None

PATIENT
  Age: 66 Year
  Sex: Female

DRUGS (25)
  1. UPTRAVI [Concomitant]
     Active Substance: SELEXIPAG
  2. MORPHINE [Concomitant]
     Active Substance: MORPHINE
  3. BUMETANIDE. [Concomitant]
     Active Substance: BUMETANIDE
  4. DOK [Concomitant]
     Active Substance: DOCUSATE SODIUM
  5. CALCIUM 500+D [Concomitant]
     Active Substance: CALCIUM\VITAMIN D
  6. AMBRISENTAN 10MG TABLETS 30/BO: 10MG [Suspect]
     Active Substance: AMBRISENTAN
     Indication: PULMONARY HYPERTENSION
     Route: 048
     Dates: start: 20170321
  7. SILDENAFIL. [Concomitant]
     Active Substance: SILDENAFIL
  8. ALBUTEROL HFA [Concomitant]
     Active Substance: ALBUTEROL SULFATE
  9. MECLIZINE [Concomitant]
     Active Substance: MECLIZINE HYDROCHLORIDE
  10. NORCO [Concomitant]
     Active Substance: ACETAMINOPHEN\HYDROCODONE BITARTRATE
  11. ATORVASTATIN [Concomitant]
     Active Substance: ATORVASTATIN
  12. ALVESCO HFA [Concomitant]
  13. NARCAN NASL SPRAY [Concomitant]
  14. MIRTAZAPINE. [Concomitant]
     Active Substance: MIRTAZAPINE
  15. FERROUS SULFATE. [Concomitant]
     Active Substance: FERROUS SULFATE
  16. ASPIRIN. [Concomitant]
     Active Substance: ASPIRIN
  17. FAMOTIDINE. [Concomitant]
     Active Substance: FAMOTIDINE
  18. COLCHICINE. [Concomitant]
     Active Substance: COLCHICINE
  19. OLANZAPINE. [Concomitant]
     Active Substance: OLANZAPINE
  20. SENNA LEXATIVE [Concomitant]
  21. NORTRIPTYLINE [Concomitant]
     Active Substance: NORTRIPTYLINE
  22. METOLAZONE. [Concomitant]
     Active Substance: METOLAZONE
  23. KLOR?CON [Concomitant]
     Active Substance: POTASSIUM CHLORIDE
  24. CLEARLAX [Concomitant]
     Active Substance: POLYETHYLENE GLYCOL 3350
  25. ALLOPURINOL. [Concomitant]
     Active Substance: ALLOPURINOL

REACTIONS (7)
  - Respiratory failure [None]
  - Acute kidney injury [None]
  - Fluid overload [None]
  - Polyuria [None]
  - Pulmonary hypertension [None]
  - Hyponatraemia [None]
  - Hypokalaemia [None]

NARRATIVE: CASE EVENT DATE: 20210601
